FAERS Safety Report 22153413 (Version 3)
Quarter: 2024Q4

REPORT INFORMATION
  Report Type: Spontaneous
  Country: HU (occurrence: HU)
  Receive Date: 20230329
  Receipt Date: 20241022
  Transmission Date: 20250115
  Serious: Yes (Other)
  Sender: CELLTRION
  Company Number: HU-CELLTRION INC.-2023HU006292

PATIENT

DRUGS (6)
  1. RITUXIMAB [Suspect]
     Active Substance: RITUXIMAB
     Indication: Immune thrombocytopenia
     Dosage: UNK
     Route: 065
  2. ELTROMBOPAG [Suspect]
     Active Substance: ELTROMBOPAG
     Indication: Immune thrombocytopenia
     Dosage: UNK
     Route: 065
  3. ELTROMBOPAG [Suspect]
     Active Substance: ELTROMBOPAG
     Dosage: UNK (2 LINE TREATMENT)
     Route: 065
  4. NPLATE [Concomitant]
     Active Substance: ROMIPLOSTIM
     Indication: Immune thrombocytopenia
     Dosage: UNK
     Route: 065
  5. AVATROMBOPAG [Concomitant]
     Active Substance: AVATROMBOPAG
     Indication: Immune thrombocytopenia
     Dosage: 1 DOSAGE FORM, QW (PER DAY 1 WEEK (1 TABLET/WEEK)
     Route: 065
  6. DEXAMETHASONE [Concomitant]
     Active Substance: DEXAMETHASONE
     Indication: Immune thrombocytopenia
     Dosage: UNK
     Route: 065

REACTIONS (5)
  - Platelet count abnormal [Recovered/Resolved]
  - Immune thrombocytopenia [Unknown]
  - Therapy non-responder [Unknown]
  - Maternal exposure during pregnancy [Unknown]
  - Off label use [Unknown]
